FAERS Safety Report 13678737 (Version 1)
Quarter: 2017Q2

REPORT INFORMATION
  Report Type: Spontaneous
  Country: US (occurrence: US)
  Receive Date: 20170622
  Receipt Date: 20170622
  Transmission Date: 20170830
  Serious: Yes (Other)
  Sender: FDA-Public Use
  Company Number: US-PFIZER INC-2017266445

PATIENT

DRUGS (1)
  1. XALKORI [Suspect]
     Active Substance: CRIZOTINIB

REACTIONS (6)
  - Thrombosis [Unknown]
  - Fall [Unknown]
  - Administration site bruise [Unknown]
  - Confusional state [Unknown]
  - Joint injury [Unknown]
  - Epistaxis [Unknown]
